FAERS Safety Report 9521023 (Version 1)
Quarter: 2013Q1

REPORT INFORMATION
  Report Type: Spontaneous
  Country: US (occurrence: None)
  Receive Date: 20130305
  Receipt Date: 20130305
  Transmission Date: 20140127
  Serious: Yes (Hospitalization)
  Sender: FDA-Public Use
  Company Number: 163-21880-12081486

PATIENT
  Age: 69 Year
  Sex: Female
  Weight: 68.49 kg

DRUGS (10)
  1. REVLIMID (LENALIDOMIDE) (CAPSULES) [Suspect]
     Indication: PLASMA CELL MYELOMA
     Dosage: 15 MG, 21 IN 21 D, PO
     Route: 048
     Dates: start: 20120316, end: 2012
  2. AMLODIPINE (AMLODIPINE) (UNKNOWN) [Concomitant]
  3. ASPIRIN (ACETYLSALICYLIC ACID) (UNKNOWN) (ACETYLSALICYLIC ACID) [Concomitant]
  4. CALTRATE + D (LEKOVIT CA) (UNKNOWN) [Concomitant]
  5. FLORASTOR (SACCHAROMYCES BOULARDII) (UNKNOWN) [Concomitant]
  6. GABAPENTIN (GABAPENTIN) (UNKNOWN) (GABAPENTIN) [Concomitant]
  7. LOVASTATIN (LOVASTATIN) (UNKNOWN) [Concomitant]
  8. METOPROLOL (METOPROLOL) (UNKNOWN) [Concomitant]
  9. ORACEA (DOXYCYCLINE) (UNKNOWN) [Concomitant]
  10. VICODIN (VICODIN) (UNKNOWN) [Concomitant]

REACTIONS (3)
  - Diverticulitis [None]
  - Nausea [None]
  - Drug dose omission [None]
